FAERS Safety Report 8396960-7 (Version None)
Quarter: 2012Q2

REPORT INFORMATION
  Report Type: 
  Country: None (occurrence: None)
  Receive Date: 20120530
  Receipt Date: 20120525
  Transmission Date: 20120825
  Serious: No
  Sender: FDA-Public Use
  Company Number: US-PFIZER INC-2012127288

PATIENT
  Sex: Female
  Weight: 50 kg

DRUGS (7)
  1. MULTI-VITAMINS [Concomitant]
     Dosage: UNK
  2. ALPRAZOLAM [Suspect]
     Dosage: 0.25 MG, 3X/DAY
     Route: 048
     Dates: start: 20120501
  3. FISH OIL [Concomitant]
     Dosage: UNK
  4. AUGMENTIN [Concomitant]
     Dosage: UNK
  5. CYCLOBENZAPRINE [Concomitant]
     Indication: SCOLIOSIS
     Dosage: 10 MG, UNK
  6. CYCLOBENZAPRINE [Concomitant]
     Indication: MUSCLE SPASMS
  7. NEURONTIN [Suspect]
     Indication: TREMOR
     Dosage: 900 MG, 3X/DAY
     Route: 048

REACTIONS (3)
  - SPEECH DISORDER [None]
  - FEELING ABNORMAL [None]
  - SOMNOLENCE [None]
